FAERS Safety Report 12798143 (Version 1)
Quarter: 2016Q3

REPORT INFORMATION
  Report Type: Spontaneous
  Country: GB (occurrence: GB)
  Receive Date: 20160930
  Receipt Date: 20160930
  Transmission Date: 20161109
  Serious: Yes (Disabling, Other)
  Sender: FDA-Public Use
  Company Number: GB-TEVA-694958ACC

PATIENT
  Age: 51 Year
  Sex: Female
  Weight: 47 kg

DRUGS (11)
  1. LOSEC [Concomitant]
     Active Substance: OMEPRAZOLE
  2. MICRONOR [Concomitant]
     Active Substance: NORETHINDRONE
  3. NYTOL [Concomitant]
     Active Substance: DIPHENHYDRAMINE HYDROCHLORIDE
  4. VITAMIN D [Concomitant]
     Active Substance: CHOLECALCIFEROL
     Dosage: WITHDRAWN
  5. VALERIAN [Concomitant]
     Active Substance: VALERIAN
  6. ALENDRONIC ACID [Suspect]
     Active Substance: ALENDRONIC ACID
     Indication: OSTEOPOROSIS PROPHYLAXIS
     Route: 048
     Dates: start: 201509, end: 201512
  7. ALCOHOL. [Concomitant]
     Active Substance: ALCOHOL
  8. COENZYME Q10 [Concomitant]
     Active Substance: UBIDECARENONE
  9. ZOPICLONE [Concomitant]
     Active Substance: ZOPICLONE
  10. RIBOSE [Concomitant]
     Active Substance: DIETARY SUPPLEMENT
  11. CALCIUM [Concomitant]
     Active Substance: CALCIUM
     Dosage: WITHDRAWN

REACTIONS (4)
  - Fatigue [Not Recovered/Not Resolved]
  - Constipation [Unknown]
  - Gastrointestinal disorder [Unknown]
  - Pain in extremity [Not Recovered/Not Resolved]

NARRATIVE: CASE EVENT DATE: 201510
